FAERS Safety Report 6031574-5 (Version None)
Quarter: 2009Q1

REPORT INFORMATION
  Report Type: 
  Country: None (occurrence: None)
  Receive Date: 20090108
  Receipt Date: 20081226
  Transmission Date: 20090719
  Serious: Yes (Hospitalization)
  Sender: FDA-Public Use
  Company Number: JP-BAYER-200910009BYL

PATIENT
  Age: 37 Year
  Sex: Male
  Weight: 61 kg

DRUGS (1)
  1. NEXAVAR [Suspect]
     Indication: RENAL CELL CARCINOMA STAGE IV
     Route: 048
     Dates: start: 20080421

REACTIONS (2)
  - DIARRHOEA [None]
  - GLUCOSE TOLERANCE IMPAIRED [None]
